FAERS Safety Report 25750526 (Version 1)
Quarter: 2025Q3

REPORT INFORMATION
  Report Type: Other
  Country: AU (occurrence: AU)
  Receive Date: 20250902
  Receipt Date: 20250902
  Transmission Date: 20251020
  Serious: Yes (Other)
  Sender: BIOCON
  Company Number: AU-BIOCON BIOLOGICS LIMITED-BBL2025004724

PATIENT

DRUGS (1)
  1. ADALIMUMAB [Suspect]
     Active Substance: ADALIMUMAB
     Indication: Product used for unknown indication
     Route: 065

REACTIONS (25)
  - Crohn^s disease [Unknown]
  - Ileal stenosis [Unknown]
  - Intestinal stenosis [Unknown]
  - Adverse drug reaction [Unknown]
  - Abdominal distension [Unknown]
  - Blood albumin decreased [Unknown]
  - Breath odour [Unknown]
  - C-reactive protein increased [Unknown]
  - Constipation [Unknown]
  - Disease complication [Unknown]
  - Faecal calprotectin increased [Unknown]
  - Faeces discoloured [Unknown]
  - Hunger [Unknown]
  - Mental disorder [Unknown]
  - Taste disorder [Unknown]
  - Thirst [Unknown]
  - Tongue coated [Unknown]
  - Weight decreased [Unknown]
  - Diarrhoea [Unknown]
  - Dyspepsia [Unknown]
  - Fatigue [Unknown]
  - Dizziness [Unknown]
  - Vomiting [Unknown]
  - Abdominal pain [Unknown]
  - Nausea [Unknown]
